FAERS Safety Report 8207760-2 (Version None)
Quarter: 2012Q1

REPORT INFORMATION
  Report Type: 
  Country: None (occurrence: None)
  Receive Date: 20120313
  Receipt Date: 20120313
  Transmission Date: 20120608
  Serious: No
  Sender: FDA-Public Use
  Company Number: None

PATIENT
  Sex: Female
  Weight: 74.5 kg

DRUGS (8)
  1. ATIVAN [Concomitant]
  2. FLEXERIL [Concomitant]
  3. ZOFRAN [Concomitant]
  4. OXYCODONE HCL [Concomitant]
  5. XANAX [Concomitant]
  6. COMPAZINE [Concomitant]
  7. ABRAXANE [Suspect]
     Dosage: 180MG
     Dates: end: 20120222
  8. VALTREX [Concomitant]

REACTIONS (1)
  - NEUTROPENIA [None]
